FAERS Safety Report 10523334 (Version 2)
Quarter: 2014Q4

REPORT INFORMATION
  Report Type: Spontaneous
  Country: GB (occurrence: GB)
  Receive Date: 20141016
  Receipt Date: 20141016
  Transmission Date: 20150528
  Serious: Yes (Other)
  Sender: FDA-Public Use
  Company Number: GB-ELI_LILLY_AND_COMPANY-GB201407005425

PATIENT
  Age: 76 Year
  Sex: Female
  Weight: 94 kg

DRUGS (2)
  1. HUMULIN 70/30 [Suspect]
     Active Substance: INSULIN HUMAN
     Indication: TYPE 2 DIABETES MELLITUS
     Dosage: UNK, BID
     Route: 058
     Dates: start: 201212
  2. OMEPRAZOLE. [Concomitant]
     Active Substance: OMEPRAZOLE

REACTIONS (11)
  - Left ventricular failure [Unknown]
  - Biliary dilatation [Recovered/Resolved]
  - Sleep apnoea syndrome [Unknown]
  - Chronic kidney disease [Unknown]
  - Blood glucose increased [Unknown]
  - Malaise [Recovered/Resolved]
  - Blood glucose decreased [Recovered/Resolved]
  - Feeling abnormal [Not Recovered/Not Resolved]
  - Dyspnoea [Not Recovered/Not Resolved]
  - Heart rate increased [Not Recovered/Not Resolved]
  - Abdominal distension [Not Recovered/Not Resolved]

NARRATIVE: CASE EVENT DATE: 201307
